FAERS Safety Report 24671686 (Version 1)
Quarter: 2024Q4

REPORT INFORMATION
  Report Type: Report from Study
  Country: CL (occurrence: CL)
  Receive Date: 20241127
  Receipt Date: 20241127
  Transmission Date: 20250114
  Serious: Yes (Other)
  Sender: ALEXION PHARMACEUTICALS
  Company Number: CL-AstraZeneca-CH-00750506A

PATIENT
  Age: 31 Year
  Weight: 77 kg

DRUGS (1)
  1. ULTOMIRIS [Suspect]
     Active Substance: RAVULIZUMAB-CWVZ
     Indication: Paroxysmal nocturnal haemoglobinuria
     Dosage: 3300 MILLIGRAM, Q8W

REACTIONS (17)
  - Abortion spontaneous [Recovered/Resolved]
  - Haemolysis [Not Recovered/Not Resolved]
  - Discouragement [Not Recovered/Not Resolved]
  - Weight increased [Recovering/Resolving]
  - Myalgia [Not Recovered/Not Resolved]
  - Constipation [Not Recovered/Not Resolved]
  - Poor peripheral circulation [Unknown]
  - Fluid retention [Not Recovered/Not Resolved]
  - Amnesia [Not Recovered/Not Resolved]
  - Dry skin [Not Recovered/Not Resolved]
  - Exposure during pregnancy [Unknown]
  - Headache [Unknown]
  - Rash [Not Recovered/Not Resolved]
  - Blood pressure decreased [Unknown]
  - Feeling abnormal [Unknown]
  - Anaemia [Not Recovered/Not Resolved]
  - Blood bilirubin increased [Not Recovered/Not Resolved]
